FAERS Safety Report 10062028 (Version 1)
Quarter: 2014Q1

REPORT INFORMATION
  Report Type: Spontaneous
  Country: US (occurrence: None)
  Receive Date: 20140311
  Receipt Date: 20140311
  Transmission Date: 20141002
  Serious: Yes (Other)
  Sender: FDA-Public Use
  Company Number: AUR-APL-2013-07034

PATIENT
  Sex: Female

DRUGS (3)
  1. LEVETIRACETAM [Suspect]
     Indication: CONVULSION
  2. NEURONTIN [Suspect]
     Indication: CONVULSION
  3. ZONEGRAN [Suspect]
     Indication: CONVULSION

REACTIONS (1)
  - Convulsion [None]
